FAERS Safety Report 7827549-3 (Version None)
Quarter: 2011Q4

REPORT INFORMATION
  Report Type: 
  Country: None (occurrence: None)
  Receive Date: 20111020
  Receipt Date: 20111018
  Transmission Date: 20120403
  Serious: Yes (Death)
  Sender: FDA-Public Use
  Company Number: PHEH2011US05647

PATIENT
  Sex: Male

DRUGS (7)
  1. ALPHAGAN [Concomitant]
     Dosage: 0.2 %, BID
     Dates: start: 20090601
  2. REVLIMID [Concomitant]
     Dosage: 10 MG, DAILY
     Route: 048
  3. EXJADE [Suspect]
     Indication: IRON OVERLOAD
     Dosage: 1750 MG, PER DAY
     Route: 048
     Dates: start: 20090608, end: 20090611
  4. DEXAMETHASONE [Concomitant]
     Dosage: 40 MG, MONDAY
     Route: 048
     Dates: start: 20090601
  5. VITAMIN B-12 [Concomitant]
     Dosage: 1000 UG, UNK
     Route: 058
  6. XALATAN [Concomitant]
     Dosage: 0.005 %, HS
     Dates: start: 20090601
  7. ASPIRIN [Concomitant]
     Dosage: 81 MG, DAILY
     Route: 048
     Dates: start: 20090601

REACTIONS (3)
  - DIARRHOEA [None]
  - PAIN [None]
  - DEATH [None]
